FAERS Safety Report 21130793 (Version 3)
Quarter: 2022Q3

REPORT INFORMATION
  Report Type: Spontaneous
  Country: US (occurrence: US)
  Receive Date: 20220726
  Receipt Date: 20220914
  Transmission Date: 20221027
  Serious: No
  Sender: FDA-Public Use
  Company Number: US-JNJFOC-20220745858

PATIENT
  Age: 7 Decade
  Sex: Female
  Weight: 57.7 kg

DRUGS (2)
  1. OPSUMIT [Suspect]
     Active Substance: MACITENTAN
     Indication: Product used for unknown indication
     Route: 048
     Dates: start: 20210624
  2. UPTRAVI [Suspect]
     Active Substance: SELEXIPAG
     Indication: Pulmonary arterial hypertension
     Dosage: UPTRAVI 200MCG ORALLY 2 TIMES DAILY
     Route: 048

REACTIONS (4)
  - Illness [Unknown]
  - Sinusitis [Unknown]
  - Headache [Unknown]
  - Muscle spasms [Unknown]
